FAERS Safety Report 18308943 (Version 4)
Quarter: 2020Q4

REPORT INFORMATION
  Report Type: Report from Study
  Country: NL (occurrence: NL)
  Receive Date: 20200925
  Receipt Date: 20201127
  Transmission Date: 20210113
  Serious: Yes (Hospitalization)
  Sender: FDA-Public Use
  Company Number: NL-ROCHE-2681574

PATIENT
  Age: 65 Year
  Sex: Female

DRUGS (1)
  1. ATEZOLIZUMAB. [Suspect]
     Active Substance: ATEZOLIZUMAB
     Indication: TRIPLE NEGATIVE BREAST CANCER
     Route: 042
     Dates: start: 20190910

REACTIONS (3)
  - Abdominal pain [Recovered/Resolved]
  - Constipation [Recovered/Resolved]
  - Waist circumference increased [Recovered/Resolved]

NARRATIVE: CASE EVENT DATE: 20191018
